FAERS Safety Report 19026031 (Version 1)
Quarter: 2021Q1

REPORT INFORMATION
  Report Type: Spontaneous
  Country: US (occurrence: US)
  Receive Date: 20210318
  Receipt Date: 20210318
  Transmission Date: 20210420
  Serious: Yes (Other)
  Sender: FDA-Public Use
  Company Number: US-PFIZER INC-2021218537

PATIENT
  Age: 69 Year
  Sex: Male
  Weight: 87.53 kg

DRUGS (6)
  1. AMLODIPINE BESILATE [Interacting]
     Active Substance: AMLODIPINE BESYLATE
     Dosage: 10 MG (10MG TO 5MG)
     Dates: start: 20200119
  2. BENAZEPRIL [Interacting]
     Active Substance: BENAZEPRIL HYDROCHLORIDE
     Dosage: 40 MG (40MG TO 20MG)
     Dates: start: 20200119
  3. AMLODIPINE BESILATE [Suspect]
     Active Substance: AMLODIPINE BESYLATE
     Indication: HYPERTENSION
     Dosage: 10 MG, DAILY (10 MG DAILY AM )
     Dates: start: 200712
  4. BENAZEPRIL [Interacting]
     Active Substance: BENAZEPRIL HYDROCHLORIDE
     Dosage: 20 MG (40MG TO 20MG. )
     Dates: start: 20200116
  5. AMLODIPINE BESILATE [Interacting]
     Active Substance: AMLODIPINE BESYLATE
     Dosage: 5 MG (10MG TO 5MG. )
     Dates: start: 20170912
  6. AMLODIPINE BESILATE [Interacting]
     Active Substance: AMLODIPINE BESYLATE
     Dosage: 5 MG (10MG TO 5MG. )
     Dates: start: 20200116

REACTIONS (53)
  - Adrenal mass [Unknown]
  - Arthralgia [Unknown]
  - Back pain [Unknown]
  - Inguinal hernia [Unknown]
  - Pain in extremity [Unknown]
  - Umbilical hernia [Unknown]
  - Blood glucose increased [Unknown]
  - Functional gastrointestinal disorder [Unknown]
  - Pelvic pain [Unknown]
  - Sinus disorder [Unknown]
  - Skin discolouration [Unknown]
  - Spinal osteoarthritis [Unknown]
  - Angioedema [Unknown]
  - Nephrolithiasis [Unknown]
  - Headache [Unknown]
  - Tinnitus [Unknown]
  - Tooth disorder [Unknown]
  - Vision blurred [Unknown]
  - Urinary retention [Unknown]
  - Contraindicated product administered [Unknown]
  - Peripheral swelling [Unknown]
  - Renal disorder [Unknown]
  - Aortic aneurysm [Unknown]
  - Mean cell volume abnormal [Unknown]
  - Eye swelling [Unknown]
  - Hypertensive heart disease [Unknown]
  - Carotid arteriosclerosis [Unknown]
  - Emphysema [Unknown]
  - Flatulence [Unknown]
  - Micturition disorder [Unknown]
  - Skin burning sensation [Unknown]
  - Fatigue [Unknown]
  - Malaise [Unknown]
  - Renal cyst [Unknown]
  - Sleep disorder [Unknown]
  - Weight increased [Unknown]
  - Hypertension [Unknown]
  - Coronary artery disease [Unknown]
  - Lipids increased [Unknown]
  - Parathyroid tumour benign [Unknown]
  - Constipation [Unknown]
  - Drug interaction [Unknown]
  - Hiatus hernia [Unknown]
  - Prostatomegaly [Unknown]
  - Electrocardiogram abnormal [Unknown]
  - Haemoglobin increased [Unknown]
  - Cardiac failure [Unknown]
  - Abdominal distension [Unknown]
  - Arthritis [Unknown]
  - Diverticulum [Unknown]
  - Pain [Unknown]
  - Pruritus [Unknown]
  - Adrenal adenoma [Unknown]

NARRATIVE: CASE EVENT DATE: 20090810
